FAERS Safety Report 21669224 (Version 1)
Quarter: 2022Q4

REPORT INFORMATION
  Report Type: Report from Study
  Country: US (occurrence: None)
  Receive Date: 20221201
  Receipt Date: 20221201
  Transmission Date: 20230113
  Serious: Yes (Death, Hospitalization, Other)
  Sender: FDA-Public Use
  Company Number: 2022A393980

PATIENT
  Age: 893 Month
  Sex: Female

DRUGS (1)
  1. FARXIGA [Suspect]
     Active Substance: DAPAGLIFLOZIN PROPANEDIOL
     Indication: Diabetic nephropathy
     Route: 048
     Dates: end: 2022

REACTIONS (8)
  - Death [Fatal]
  - Renal impairment [Unknown]
  - Anaemia [Unknown]
  - Cardiac infection [Unknown]
  - Cystitis [Unknown]
  - Asthenia [Unknown]
  - Fluid retention [Unknown]
  - Urine output decreased [Unknown]

NARRATIVE: CASE EVENT DATE: 20221101
